FAERS Safety Report 14192019 (Version 1)
Quarter: 2017Q4

REPORT INFORMATION
  Report Type: Spontaneous
  Country: US (occurrence: US)
  Receive Date: 20171115
  Receipt Date: 20171115
  Transmission Date: 20180321
  Serious: No
  Sender: FDA-Public Use
  Company Number: US-PERRIGO-16US022906

PATIENT
  Age: 76 Year
  Sex: Male
  Weight: 90.7 kg

DRUGS (3)
  1. NICOTINE POLACRILEX [Suspect]
     Active Substance: NICOTINE
     Indication: SMOKING CESSATION THERAPY
     Dosage: 1 TO 3 LOZENGES, BID
     Route: 002
     Dates: start: 201608, end: 20161214
  2. MORPHINE [Concomitant]
     Active Substance: MORPHINE
     Dosage: 15 MG, UNKNOWN
     Route: 065
     Dates: start: 201611
  3. MORPHINE [Concomitant]
     Active Substance: MORPHINE
     Indication: PAIN
     Dosage: 5 MG, UNKNOWN
     Route: 065
     Dates: start: 2009, end: 201611

REACTIONS (4)
  - Incorrect dose administered [Recovered/Resolved]
  - Tongue discomfort [Recovered/Resolved]
  - Drug ineffective [Unknown]
  - Dyspnoea [Recovered/Resolved]

NARRATIVE: CASE EVENT DATE: 201608
